FAERS Safety Report 4610462-2 (Version None)
Quarter: 2005Q1

REPORT INFORMATION
  Report Type: 
  Country: None (occurrence: None)
  Receive Date: 20050315
  Receipt Date: 20050307
  Transmission Date: 20050727
  Serious: Yes (Hospitalization, Other)
  Sender: FDA-Public Use
  Company Number: KII-2005-0015439

PATIENT
  Age: 41 Year
  Sex: Male

DRUGS (7)
  1. MORPHINE SULFATE [Suspect]
     Indication: DRUG USE FOR UNKNOWN INDICATION
     Dosage: ORAL
     Route: 048
  2. PAXIL [Suspect]
     Indication: DRUG USE FOR UNKNOWN INDICATION
     Dosage: ORAL
     Route: 048
  3. ACETAMINOPHEN AND HYDROCODONE BITARTRATE [Suspect]
     Indication: DRUG USE FOR UNKNOWN INDICATION
     Dosage: ORAL
     Route: 048
  4. ETHANOL (ETHANOL) [Suspect]
     Indication: DRUG USE FOR UNKNOWN INDICATION
     Dosage: ORAL
     Route: 048
  5. ASPIRIN [Suspect]
     Indication: DRUG USE FOR UNKNOWN INDICATION
  6. BETA BLOCKING AGENTS [Concomitant]
  7. CALCIUM CHANNEL BLOCKERS [Concomitant]

REACTIONS (10)
  - AGGRESSION [None]
  - AGITATION [None]
  - CLAUSTROPHOBIA [None]
  - CONFUSIONAL STATE [None]
  - CONVULSION [None]
  - DIZZINESS [None]
  - IRRITABILITY [None]
  - LETHARGY [None]
  - MULTIPLE DRUG OVERDOSE [None]
  - SINUS TACHYCARDIA [None]
